FAERS Safety Report 4319259-4 (Version None)
Quarter: 2004Q1

REPORT INFORMATION
  Report Type: 
  Country: None (occurrence: None)
  Receive Date: 20040316
  Receipt Date: 20040301
  Transmission Date: 20041129
  Serious: Yes (Other)
  Sender: FDA-Public Use
  Company Number: 231637

PATIENT
  Age: 54 Year
  Sex: Male
  Weight: 89 kg

DRUGS (6)
  1. ACTRAPID HM (GE)  (INSULIN HUMAN) [Suspect]
     Indication: DIABETES MELLITUS INSULIN-DEPENDENT
     Dosage: 3- U, QD, SUBCUTANEOUS
     Route: 058
     Dates: start: 20030625
  2. PROTAPHANE PENFILL (INSULIN HUMAN) [Concomitant]
  3. METOPROLOL TARTRATE [Concomitant]
  4. ACETYLSALICYLIC ACID SRT [Concomitant]
  5. LIPITOR [Concomitant]
  6. INHIBACE ^ANDREU^ (CILAZAPRIL) [Concomitant]

REACTIONS (6)
  - CONFUSIONAL STATE [None]
  - GLYCOSYLATED HAEMOGLOBIN INCREASED [None]
  - HYPOGLYCAEMIC SEIZURE [None]
  - MOUTH INJURY [None]
  - TONGUE HAEMORRHAGE [None]
  - TONGUE INJURY [None]
